FAERS Safety Report 7156792-4 (Version None)
Quarter: 2010Q4

REPORT INFORMATION
  Report Type: 
  Country: None (occurrence: None)
  Receive Date: 20101214
  Receipt Date: 20101129
  Transmission Date: 20110411
  Serious: No
  Sender: FDA-Public Use
  Company Number: US-PFIZER INC-2010160411

PATIENT
  Age: 83 Year
  Sex: Male

DRUGS (1)
  1. ADVIL [Suspect]
     Dosage: 1 DF, 1X/DAY
     Route: 048
     Dates: start: 20101128, end: 20101128

REACTIONS (1)
  - SKIN DISCOLOURATION [None]
